FAERS Safety Report 10680680 (Version 1)
Quarter: 2014Q4

REPORT INFORMATION
  Report Type: Spontaneous
  Country: US (occurrence: US)
  Receive Date: 20141229
  Receipt Date: 20141229
  Transmission Date: 20150529
  Serious: No
  Sender: FDA-Public Use
  Company Number: US-SA-2014SA131794

PATIENT
  Sex: Female

DRUGS (1)
  1. PLAVIX [Suspect]
     Active Substance: CLOPIDOGREL BISULFATE
     Route: 065

REACTIONS (5)
  - Eye disorder [Unknown]
  - Dizziness [Unknown]
  - Eye movement disorder [Recovered/Resolved]
  - Visual impairment [Unknown]
  - Balance disorder [Unknown]
